FAERS Safety Report 6176852-4 (Version None)
Quarter: 2009Q2

REPORT INFORMATION
  Report Type: 
  Country: None (occurrence: None)
  Receive Date: 20090501
  Receipt Date: 20090427
  Transmission Date: 20091009
  Serious: Yes (Death, Hospitalization, Other)
  Sender: FDA-Public Use
  Company Number: PHHO2009CH04161

PATIENT
  Sex: Female
  Weight: 55 kg

DRUGS (1)
  1. RAD 666 RAD+TAB [Suspect]
     Indication: METASTATIC RENAL CELL CARCINOMA
     Dosage: 10 MG / DAY
     Route: 048
     Dates: start: 20090316, end: 20090325

REACTIONS (12)
  - ACUTE RESPIRATORY FAILURE [None]
  - ASTHENIA [None]
  - BLOOD CREATININE INCREASED [None]
  - C-REACTIVE PROTEIN INCREASED [None]
  - COUGH [None]
  - DYSPNOEA [None]
  - FATIGUE [None]
  - HEPATIC ENZYME INCREASED [None]
  - HYPERAEMIA [None]
  - LUNG INFILTRATION [None]
  - PYREXIA [None]
  - RESPIRATORY DISORDER [None]
